FAERS Safety Report 16120099 (Version 1)
Quarter: 2019Q1

REPORT INFORMATION
  Report Type: Spontaneous
  Country: FR (occurrence: FR)
  Receive Date: 20190326
  Receipt Date: 20190326
  Transmission Date: 20190418
  Serious: Yes (Other)
  Sender: FDA-Public Use
  Company Number: PHHY2019FR062622

PATIENT
  Age: 36 Year
  Sex: Female

DRUGS (4)
  1. OPTIMIZETTE [Suspect]
     Active Substance: DESOGESTREL
     Indication: CONTRACEPTION
     Dosage: UNK (NON RENSEIGN?E)
     Route: 048
  2. SOLUPRED (PREDNISOLONE METASULFOBENZOATE SODIUM) [Suspect]
     Active Substance: PREDNISOLONE SODIUM METAZOATE
     Indication: SINUSITIS
     Dosage: 50 MG, QD
     Route: 048
     Dates: start: 20171213, end: 20171217
  3. AMOXICILLIN. [Suspect]
     Active Substance: AMOXICILLIN
     Indication: SINUSITIS
     Dosage: 3 G, QD
     Route: 048
     Dates: start: 20171213, end: 20171219
  4. PYOSTACINE [Suspect]
     Active Substance: PRISTINAMYCIN
     Indication: SINUSITIS
     Dosage: 4 DF, QD
     Route: 048
     Dates: start: 20171222, end: 20171223

REACTIONS (2)
  - Urticaria [Not Recovered/Not Resolved]
  - Medication error [Recovered/Resolved]

NARRATIVE: CASE EVENT DATE: 20171222
